FAERS Safety Report 7225556-5 (Version None)
Quarter: 2011Q1

REPORT INFORMATION
  Report Type: 
  Country: None (occurrence: None)
  Receive Date: 20110103
  Receipt Date: 20101110
  Transmission Date: 20110831
  Serious: Yes (Other)
  Sender: FDA-Public Use
  Company Number: ACO_20357_2010

PATIENT
  Sex: Male

DRUGS (2)
  1. TYSABRI [Suspect]
     Indication: PRODUCT USED FOR UNKNOWN INDICATION
     Dosage: 100 MG, MONTHLY, INTRAVENOUS
     Route: 042
     Dates: start: 20100101
  2. AMPYRA [Suspect]
     Indication: GAIT DISTURBANCE
     Dates: start: 20100801

REACTIONS (7)
  - FATIGUE [None]
  - MOTOR DYSFUNCTION [None]
  - HEMIPARESIS [None]
  - PROSTATIC SPECIFIC ANTIGEN INCREASED [None]
  - PSYCHOMOTOR SKILLS IMPAIRED [None]
  - BLINDNESS [None]
  - GAIT DISTURBANCE [None]
